FAERS Safety Report 7212767-8 (Version None)
Quarter: 2010Q4

REPORT INFORMATION
  Report Type: 
  Country: None (occurrence: None)
  Receive Date: 20101227
  Receipt Date: 20101213
  Transmission Date: 20110411
  Serious: Yes (Death)
  Sender: FDA-Public Use
  Company Number: 08-228

PATIENT
  Age: 28 Year
  Sex: Female

DRUGS (1)
  1. FAZACLO ODT [Suspect]
     Dosage: 75 MG QHS PO
     Route: 048
     Dates: start: 20070606, end: 20081001

REACTIONS (2)
  - ACCIDENTAL POISONING [None]
  - DRUG TOXICITY [None]
